FAERS Safety Report 6176788-9 (Version None)
Quarter: 2009Q2

REPORT INFORMATION
  Report Type: 
  Country: None (occurrence: None)
  Receive Date: 20090501
  Receipt Date: 20080815
  Transmission Date: 20091009
  Serious: Yes (Hospitalization, Other)
  Sender: FDA-Public Use
  Company Number: US-ALEXION-A200700125

PATIENT

DRUGS (34)
  1. SOLIRIS [Suspect]
     Indication: PAROXYSMAL NOCTURNAL HAEMOGLOBINURIA
     Dosage: 600 MG, SINGLE
     Route: 042
     Dates: start: 20071219, end: 20071219
  2. SOLIRIS [Suspect]
     Dosage: 600 MG, SINGLE
     Route: 042
     Dates: start: 20071226, end: 20071226
  3. SOLIRIS [Suspect]
     Dosage: 600 MG, SINGLE
     Route: 042
     Dates: start: 20080102, end: 20080102
  4. SOLIRIS [Suspect]
     Dosage: 600 MG, SINGLE
     Route: 042
     Dates: start: 20080109, end: 20080109
  5. SOLIRIS [Suspect]
     Dosage: 900 MG, SINGLE
     Route: 042
     Dates: start: 20080116, end: 20080116
  6. SOLIRIS [Suspect]
     Dosage: 900 MG, SINGLE
     Route: 042
     Dates: start: 20080206, end: 20080206
  7. SOLIRIS [Suspect]
     Dosage: 900 MG, SINGLE
     Route: 042
     Dates: start: 20080220, end: 20080220
  8. SOLIRIS [Suspect]
     Dosage: 900 MG, SINGLE
     Route: 042
     Dates: start: 20080304, end: 20080304
  9. SOLIRIS [Suspect]
     Dosage: 900 MG, SINGLE
     Route: 042
     Dates: start: 20080318, end: 20080318
  10. SOLIRIS [Suspect]
     Dosage: 900 MG, SINGLE
     Route: 042
     Dates: start: 20080401, end: 20080401
  11. SOLIRIS [Suspect]
     Dosage: 900 MG, SINGLE
     Route: 042
     Dates: start: 20080415, end: 20080415
  12. SOLIRIS [Suspect]
     Dosage: 900 MG, SINGLE
     Route: 042
     Dates: start: 20080429, end: 20080429
  13. SOLIRIS [Suspect]
     Dosage: 900 MG, SINGLE
     Route: 042
     Dates: start: 20080514, end: 20080514
  14. SOLIRIS [Suspect]
     Dosage: 900 MG, SINGLE
     Route: 042
     Dates: start: 20080529, end: 20080529
  15. SOLIRIS [Suspect]
     Dosage: 900 MG, SINGLE
     Route: 042
     Dates: start: 20080611, end: 20080611
  16. SOLIRIS [Suspect]
     Dosage: 900 MG, SINGLE
     Route: 042
     Dates: start: 20080625, end: 20080625
  17. SOLIRIS [Suspect]
     Dosage: 900 MG, SINGLE
     Route: 042
     Dates: start: 20080709, end: 20080709
  18. SOLIRIS [Suspect]
     Dosage: 900 MG, SINGLE
     Route: 042
     Dates: start: 20080723, end: 20080723
  19. CARDIZEM [Concomitant]
     Dosage: 120 MG, QD
     Route: 048
  20. LASIX [Concomitant]
     Dosage: 20 MG, PRN
     Route: 048
  21. POTASSIUM CHLORIDE [Concomitant]
     Dosage: 20 MEQ, PRN
     Route: 048
  22. METOPROLOL TARTRATE [Concomitant]
     Dosage: UNK, QD
     Route: 048
  23. PREDNISONE [Concomitant]
     Indication: HAEMOLYSIS
     Dosage: 15 MG, QOD
     Route: 048
  24. PREDNISONE [Concomitant]
     Dosage: 5 MG, PRN
     Route: 048
  25. PREDNISONE [Concomitant]
     Dosage: 15 MG, QD
     Route: 048
  26. COUMADIN [Concomitant]
     Dosage: 5 MG, QD
     Route: 048
  27. COUMADIN [Concomitant]
     Dosage: 3.3 MG, QOD
     Route: 048
  28. VITAMIN B COMPLEX CAP [Concomitant]
  29. FOLIC ACID [Concomitant]
  30. CALCIUM [Concomitant]
  31. ZINC [Concomitant]
  32. MULTIVITAMIN /00831701/ [Concomitant]
  33. FISH OIL [Concomitant]
  34. PANCREASE /00014701/ [Concomitant]
     Indication: PANCREATITIS
     Route: 048

REACTIONS (29)
  - ABDOMINAL PAIN [None]
  - ANAEMIA [None]
  - BACK PAIN [None]
  - BACTERAEMIA [None]
  - BLOOD POTASSIUM DECREASED [None]
  - BLOOD URINE PRESENT [None]
  - BONE MARROW DISORDER [None]
  - CATHETER PLACEMENT [None]
  - COLITIS [None]
  - COLITIS ISCHAEMIC [None]
  - COLONIC STENOSIS [None]
  - CYSTITIS [None]
  - DEHYDRATION [None]
  - DIARRHOEA [None]
  - EPISTAXIS [None]
  - FALL [None]
  - HAEMATOMA [None]
  - HAEMOLYSIS [None]
  - HOT FLUSH [None]
  - INTERNATIONAL NORMALISED RATIO INCREASED [None]
  - INTESTINAL OBSTRUCTION [None]
  - INTESTINAL PERFORATION [None]
  - OCULAR ICTERUS [None]
  - PELVIC FRACTURE [None]
  - PYREXIA [None]
  - RHINORRHOEA [None]
  - SOMNOLENCE [None]
  - SPLENOMEGALY [None]
  - VOMITING [None]
